FAERS Safety Report 9352105 (Version 1)
Quarter: 2013Q2

REPORT INFORMATION
  Report Type: Spontaneous
  Country: US (occurrence: US)
  Receive Date: 20130617
  Receipt Date: 20130617
  Transmission Date: 20140414
  Serious: Yes (Death, Hospitalization)
  Sender: FDA-Public Use
  Company Number: PHHY2013US061498

PATIENT
  Age: 51 Year
  Sex: Male

DRUGS (4)
  1. NALOXONE [Suspect]
     Indication: DETOXIFICATION
  2. PROPOFOL [Suspect]
  3. CLONIDINE [Suspect]
  4. SEVOFLURANE [Suspect]

REACTIONS (7)
  - Death [Fatal]
  - Hypoxic-ischaemic encephalopathy [Unknown]
  - Hypokalaemia [Unknown]
  - Agitation [Unknown]
  - Hypertension [Unknown]
  - Tachycardia [Unknown]
  - Ventricular fibrillation [Unknown]
